FAERS Safety Report 4491953-4 (Version None)
Quarter: 2004Q4

REPORT INFORMATION
  Report Type: 
  Country: None (occurrence: None)
  Receive Date: 20041029
  Receipt Date: 20041029
  Transmission Date: 20050328
  Serious: Yes (Disabling)
  Sender: FDA-Public Use
  Company Number: None

PATIENT
  Age: 56 Year
  Sex: Female
  Weight: 79.3795 kg

DRUGS (2)
  1. ZICAM   NOSE GEL [Suspect]
     Indication: NASOPHARYNGITIS
     Dosage: 1 SQUIRT   NASAL GEL
     Route: 045
     Dates: start: 20041028
  2. ZICAM   NOSE GEL [Suspect]
     Indication: VIRAL INFECTION
     Dosage: 1 SQUIRT   NASAL GEL
     Route: 045
     Dates: start: 20041028

REACTIONS (1)
  - ANOSMIA [None]
